FAERS Safety Report 4515442-3 (Version None)
Quarter: 2004Q4

REPORT INFORMATION
  Report Type: 
  Country: None (occurrence: None)
  Receive Date: 20041029
  Receipt Date: 20040817
  Transmission Date: 20050328
  Serious: Yes (Other)
  Sender: FDA-Public Use
  Company Number: 200416182US

PATIENT
  Age: 63 Year
  Sex: Female

DRUGS (7)
  1. KETEK [Suspect]
     Indication: RESPIRATORY TRACT INFECTION
     Dosage: 800 MG QD
     Dates: start: 20040720, end: 20040721
  2. TERBUTALINE SULFATE (BRETHINE) [Concomitant]
  3. THEO-DUR [Concomitant]
  4. CROMOGLICATE SOIUM (INTAL) [Concomitant]
  5. VERAPAMIL HYDROCHLOROTHIAZIDE [Concomitant]
  6. CARBAMAZEPINE [Concomitant]
  7. SALBUTAMOL (PROVENTIL) [Concomitant]

REACTIONS (1)
  - RASH PRURITIC [None]
